FAERS Safety Report 11072716 (Version 1)
Quarter: 2015Q2

REPORT INFORMATION
  Report Type: Report from Study
  Country: US (occurrence: US)
  Receive Date: 20150428
  Receipt Date: 20150428
  Transmission Date: 20150821
  Serious: Yes (Hospitalization)
  Sender: FDA-Public Use
  Company Number: US-TAKEDA-2015MPI002530

PATIENT
  Age: 2 Year
  Sex: Male
  Weight: 13.9 kg

DRUGS (5)
  1. MITOXANTRONE HYDROCHLORIDE. [Suspect]
     Active Substance: MITOXANTRONE HYDROCHLORIDE
     Indication: ACUTE MYELOID LEUKAEMIA
     Dosage: 12 MG/M2, UNK
     Route: 042
     Dates: start: 20150328, end: 20150330
  2. VELCADE [Suspect]
     Active Substance: BORTEZOMIB
     Indication: ACUTE MYELOID LEUKAEMIA
     Dosage: 1.3 MG/M2, UNK
     Route: 042
     Dates: start: 20141205, end: 20150402
  3. CYTARABINE. [Suspect]
     Active Substance: CYTARABINE
     Indication: ACUTE MYELOID LEUKAEMIA
     Dosage: UNK UNK, 2/WEEK
     Route: 037
     Dates: start: 20141205
  4. CYTARABINE. [Suspect]
     Active Substance: CYTARABINE
     Dosage: 1000 MG/M2, BID
     Route: 042
  5. CYTARABINE. [Suspect]
     Active Substance: CYTARABINE
     Dosage: 100 MG/M2, BID
     Route: 042
     Dates: end: 20150402

REACTIONS (9)
  - Respiratory syncytial virus test positive [None]
  - Pseudomonas infection [Recovered/Resolved]
  - Device related infection [None]
  - Sinus tachycardia [Not Recovered/Not Resolved]
  - Pneumonia [Not Recovered/Not Resolved]
  - Colitis [Not Recovered/Not Resolved]
  - Pyrexia [Not Recovered/Not Resolved]
  - Parainfluenzae virus infection [None]
  - Staphylococcal infection [None]

NARRATIVE: CASE EVENT DATE: 20150326
